FAERS Safety Report 7445877-0 (Version None)
Quarter: 2011Q2

REPORT INFORMATION
  Report Type: 
  Country: None (occurrence: None)
  Receive Date: 20110429
  Receipt Date: 20110428
  Transmission Date: 20111010
  Serious: Yes (Death)
  Sender: FDA-Public Use
  Company Number: GB-ABBOTT-11P-167-0702973-00

PATIENT
  Sex: Male

DRUGS (6)
  1. FILGRASTIM [Concomitant]
     Indication: CROHN'S DISEASE
  2. AZATHIOPRINE [Concomitant]
     Indication: PRODUCT USED FOR UNKNOWN INDICATION
  3. ADALIMUMAB [Suspect]
     Dosage: 40MG/40MG INDUCTION DOSING
  4. HYPERBARIC OXYGEN [Concomitant]
     Indication: PRODUCT USED FOR UNKNOWN INDICATION
  5. ADALIMUMAB [Suspect]
     Indication: PRODUCT USED FOR UNKNOWN INDICATION
     Dosage: MAINTENANCE DOSE, 40 MG EVERY 2 WEEKS
  6. PERITONEAL NUTRITION [Concomitant]
     Indication: PRODUCT USED FOR UNKNOWN INDICATION

REACTIONS (8)
  - ESCHERICHIA SEPSIS [None]
  - SKIN EXFOLIATION [None]
  - SEPTIC SHOCK [None]
  - CANDIDA SEPSIS [None]
  - BACTERIAL SEPSIS [None]
  - SEPSIS [None]
  - DEVICE RELATED SEPSIS [None]
  - MULTI-ORGAN FAILURE [None]
